FAERS Safety Report 4335695-4 (Version None)
Quarter: 2004Q2

REPORT INFORMATION
  Report Type: 
  Country: None (occurrence: None)
  Receive Date: 20040406
  Receipt Date: 20040323
  Transmission Date: 20050107
  Serious: Yes (Hospitalization)
  Sender: FDA-Public Use
  Company Number: 04P-087-0254739-00

PATIENT
  Age: 34 Year
  Sex: Female

DRUGS (34)
  1. NORVIR [Suspect]
     Indication: HIV INFECTION
     Dosage: 400 MG, 1 IN 1 D, PER ORAL
     Route: 048
     Dates: start: 20000310, end: 20001027
  2. KALETRA [Suspect]
     Indication: HIV INFECTION
     Dosage: 6 CAPSULE, 1 IN  1 D, PER ORAL
     Route: 048
     Dates: start: 20010130
  3. ABACAVIR SULFATE [Suspect]
     Indication: HIV INFECTION
     Dosage: 600 MG, 1 IN 1 D, PER ORAL
     Route: 048
     Dates: start: 20010130
  4. INDINAVIR [Suspect]
     Indication: HIV INFECTION
     Dosage: SEE IMAGE
     Route: 048
     Dates: start: 19980831, end: 19981118
  5. INDINAVIR [Suspect]
     Indication: HIV INFECTION
     Dosage: SEE IMAGE
     Route: 048
     Dates: start: 20000310, end: 20001027
  6. NELFINAVIR [Suspect]
     Indication: HIV INFECTION
     Dosage: SEE IMAGE
     Route: 048
     Dates: start: 19980910, end: 19981118
  7. NELFINAVIR [Suspect]
     Indication: HIV INFECTION
     Dosage: SEE IMAGE
     Route: 048
     Dates: start: 19990223, end: 19991216
  8. EFAVIRENZ [Suspect]
     Indication: HIV INFECTION
     Dosage: SEE IMAGE
     Route: 048
     Dates: start: 20000310, end: 20001027
  9. EFAVIRENZ [Suspect]
     Indication: HIV INFECTION
     Dosage: SEE IMAGE
     Route: 048
     Dates: start: 20010123
  10. GANCICLOVIR [Suspect]
     Dosage: SEE IMAGE
     Dates: start: 20000215, end: 20000306
  11. GANCICLOVIR [Suspect]
     Dosage: SEE IMAGE
     Dates: start: 20000307, end: 20000424
  12. GANCICLOVIR [Suspect]
     Dosage: SEE IMAGE
     Dates: start: 20000425, end: 20000426
  13. ZIDOVUDINE [Concomitant]
  14. LAMIVUDINE [Concomitant]
  15. STAVUDINE [Concomitant]
  16. FOSCARNET SODIUM [Concomitant]
  17. RIFABUTIN [Concomitant]
  18. AMIKACIN SULFATE [Concomitant]
  19. AZITHROMYCIN HYDRATE [Concomitant]
  20. ETHAMBUTOL HCL [Concomitant]
  21. SPARFLOXACIN [Concomitant]
  22. ROXITHROMYCIN [Concomitant]
  23. PENTAMIDINE ISETHIONATE [Concomitant]
  24. SODIUM CHLORIDE [Concomitant]
  25. PREDNISOLONE [Concomitant]
  26. HYDROCORTISONE SODIUM PHOSPHATE [Concomitant]
  27. MORHINE SULFATE [Concomitant]
  28. ATOVAQUONE [Concomitant]
  29. HYDROCORTISONE [Concomitant]
  30. IV FLUID [Concomitant]
  31. HYDROXYZINE EMBONATE [Concomitant]
  32. MORPHINE [Concomitant]
  33. GLUCOSE [Concomitant]
  34. CLARITHROMYCIN [Concomitant]

REACTIONS (11)
  - BLOOD ALKALINE PHOSPHATASE INCREASED [None]
  - CALCULUS URINARY [None]
  - DISEASE RECURRENCE [None]
  - DIZZINESS [None]
  - GAMMA-GLUTAMYLTRANSFERASE INCREASED [None]
  - HIV WASTING SYNDROME [None]
  - HYPERLIPIDAEMIA [None]
  - NAUSEA [None]
  - PNEUMOCYSTIS CARINII PNEUMONIA [None]
  - VOMITING [None]
  - WEIGHT DECREASED [None]
